FAERS Safety Report 17872616 (Version 3)
Quarter: 2021Q4

REPORT INFORMATION
  Report Type: Spontaneous
  Country: US (occurrence: US)
  Receive Date: 20200608
  Receipt Date: 20211021
  Transmission Date: 20220303
  Serious: Yes (Death, Other)
  Sender: FDA-Public Use
  Company Number: US-SAARTEMIS-SAC202006040031

PATIENT
  Age: 47 Year
  Sex: Male

DRUGS (1)
  1. ZANTAC [Suspect]
     Active Substance: RANITIDINE HYDROCHLORIDE
     Indication: Gastrooesophageal reflux disease
     Dosage: UNK,  FREQUENCY: OTHER
     Dates: start: 201404, end: 201912

REACTIONS (2)
  - Hepatic cancer [Fatal]
  - Gastric cancer stage III [Unknown]

NARRATIVE: CASE EVENT DATE: 20180601
